FAERS Safety Report 10010751 (Version 1)
Quarter: 2014Q1

REPORT INFORMATION
  Report Type: Report from Study
  Country: US (occurrence: US)
  Receive Date: 20140314
  Receipt Date: 20140314
  Transmission Date: 20141002
  Serious: Yes (Hospitalization)
  Sender: FDA-Public Use
  Company Number: US-ROCHE-1362555

PATIENT
  Age: 68 Year
  Sex: Female
  Weight: 76 kg

DRUGS (2)
  1. CELLCEPT [Suspect]
     Indication: NEUROMYELITIS OPTICA
     Route: 065
     Dates: end: 20130826
  2. GABAPENTIN [Concomitant]
     Indication: NEUROMYELITIS OPTICA
     Route: 048
     Dates: start: 20130712

REACTIONS (3)
  - Neuralgia [Unknown]
  - Urinary tract infection [Recovered/Resolved]
  - Drug ineffective [Unknown]
